FAERS Safety Report 4653528-3 (Version None)
Quarter: 2005Q2

REPORT INFORMATION
  Report Type: 
  Country: None (occurrence: None)
  Receive Date: 20050503
  Receipt Date: 20050427
  Transmission Date: 20051028
  Serious: Yes (Hospitalization)
  Sender: FDA-Public Use
  Company Number: 2005UW06546

PATIENT
  Age: 60 Year
  Sex: Male

DRUGS (9)
  1. IRESSA [Suspect]
     Indication: PANCREATIC CARCINOMA METASTATIC
     Dosage: 250 MG DAILY PO
     Route: 048
     Dates: start: 20050412
  2. TAXOTERE [Suspect]
     Indication: PANCREATIC CARCINOMA METASTATIC
     Dosage: 150 MG IV
     Route: 042
     Dates: start: 20050412
  3. ADALAT [Concomitant]
  4. PAXIL [Concomitant]
  5. RANITIDINE [Concomitant]
  6. ATIVAN [Concomitant]
  7. LOVENOX [Concomitant]
  8. ENDOCET [Concomitant]
  9. KYTRIL [Concomitant]

REACTIONS (2)
  - FEBRILE NEUTROPENIA [None]
  - WHITE BLOOD CELL COUNT DECREASED [None]
